FAERS Safety Report 23338872 (Version 1)
Quarter: 2023Q4

REPORT INFORMATION
  Report Type: Spontaneous
  Country: US (occurrence: US)
  Receive Date: 20231226
  Receipt Date: 20231226
  Transmission Date: 20240109
  Serious: No
  Sender: FDA-Public Use
  Company Number: US-SANOFI-01883318

PATIENT
  Age: 66 Year
  Sex: Female

DRUGS (2)
  1. LANTUS SOLOSTAR [Suspect]
     Active Substance: INSULIN GLARGINE
     Indication: Type 2 diabetes mellitus
     Dosage: 30 UNITS BID AND DRUG TREATMENT DURATION:2 WEEKS
     Route: 058
  2. BUTEROL [TULOBUTEROL] [Concomitant]
     Dosage: UNK

REACTIONS (1)
  - Inappropriate schedule of product administration [Unknown]
